FAERS Safety Report 9033271 (Version 1)
Quarter: 2013Q1

REPORT INFORMATION
  Report Type: Other
  Country: GB (occurrence: GB)
  Receive Date: 20130128
  Receipt Date: 20130128
  Transmission Date: 20140127
  Serious: Yes (Hospitalization, Other)
  Sender: FDA-Public Use
  Company Number: GB-WATSON-2013-01175

PATIENT
  Age: 70 Year
  Sex: Male

DRUGS (3)
  1. PREDNISOLONE (UNKNOWN) [Suspect]
     Indication: PROSTATE CANCER METASTATIC
     Dosage: DOSAGE FORM: TABLET
     Route: 048
  2. ZYTIGA [Suspect]
     Indication: PROSTATE CANCER METASTATIC
     Dosage: 1000 MG, DAILY  DOSAGE FORM: TABLET
     Route: 048
     Dates: start: 20120725
  3. DECAPEPTYL                         /00975902/ [Concomitant]
     Indication: PROSTATE CANCER METASTATIC
     Dosage: 11-25 MG. INTERVAL - 1 MONTH
     Route: 030
     Dates: start: 20090829

REACTIONS (1)
  - Urinary tract infection [Recovered/Resolved]
